FAERS Safety Report 7339883-4 (Version None)
Quarter: 2011Q1

REPORT INFORMATION
  Report Type: 
  Country: None (occurrence: None)
  Receive Date: 20110228
  Receipt Date: 20110215
  Transmission Date: 20110831
  Serious: Yes (Other)
  Sender: FDA-Public Use
  Company Number: 022639

PATIENT
  Age: 60 Year
  Sex: Male

DRUGS (1)
  1. KEPPRA [Suspect]
     Dosage: 500-0-750
     Dates: start: 20100101

REACTIONS (6)
  - FATIGUE [None]
  - DIPLOPIA [None]
  - MUSCLE SPASMS [None]
  - LYMPHOCELE [None]
  - SOMNOLENCE [None]
  - GAIT DISTURBANCE [None]
